FAERS Safety Report 23241317 (Version 1)
Quarter: 2023Q4

REPORT INFORMATION
  Report Type: Spontaneous
  Country: IT (occurrence: IT)
  Receive Date: 20231129
  Receipt Date: 20231129
  Transmission Date: 20240109
  Serious: Yes (Other)
  Sender: FDA-Public Use
  Company Number: IT-SUN PHARMACEUTICAL INDUSTRIES LTD-2023RR-421218

PATIENT
  Age: 40 Year
  Sex: Male

DRUGS (10)
  1. SERTRALINE [Suspect]
     Active Substance: SERTRALINE HYDROCHLORIDE
     Indication: Major depression
     Dosage: 100 MILLIGRAM, DAILY
     Route: 065
  2. SERTRALINE [Suspect]
     Active Substance: SERTRALINE HYDROCHLORIDE
     Dosage: UNK
     Route: 065
  3. PAROXETINE [Suspect]
     Active Substance: PAROXETINE
     Indication: Major depression
     Dosage: UNK
     Route: 065
  4. FLUOXETINE [Suspect]
     Active Substance: FLUOXETINE HYDROCHLORIDE
     Indication: Major depression
     Dosage: UNK
     Route: 065
  5. DULOXETINE [Suspect]
     Active Substance: DULOXETINE
     Indication: Major depression
     Dosage: UNK
     Route: 065
  6. VENLAFAXINE [Suspect]
     Active Substance: VENLAFAXINE HYDROCHLORIDE
     Indication: Major depression
     Dosage: 300 MILLIGRAM, DAILY
     Route: 065
  7. BUPROPION [Suspect]
     Active Substance: BUPROPION
     Indication: Major depression
     Dosage: UNK
     Route: 065
  8. LITHIUM [Suspect]
     Active Substance: LITHIUM
     Indication: Major depression
     Dosage: 1200 MILLIGRAM, DAILY
     Route: 065
  9. LITHIUM [Suspect]
     Active Substance: LITHIUM
     Dosage: UNK
     Route: 065
  10. LAMOTRIGINE [Suspect]
     Active Substance: LAMOTRIGINE
     Indication: Major depression
     Dosage: 200 MILLIGRAM, DAILY
     Route: 065

REACTIONS (4)
  - Therapeutic product effect incomplete [Unknown]
  - Disease recurrence [Unknown]
  - Drug ineffective [Unknown]
  - Suicidal ideation [Unknown]
